FAERS Safety Report 4921565-7 (Version None)
Quarter: 2006Q1

REPORT INFORMATION
  Report Type: 
  Country: None (occurrence: None)
  Receive Date: 20060224
  Receipt Date: 20060214
  Transmission Date: 20060701
  Serious: Yes (Other)
  Sender: FDA-Public Use
  Company Number: PHBS2006KR02460

PATIENT
  Age: 55 Year
  Sex: Male
  Weight: 48.2 kg

DRUGS (4)
  1. CYCLOSPORINE [Suspect]
     Indication: HEART TRANSPLANT
     Dosage: UNK, UNK
     Route: 048
  2. MYCOPHENOLATE MOFETIL [Concomitant]
  3. PREDNISOLONE [Concomitant]
  4. NEORAL [Suspect]
     Indication: HEART TRANSPLANT
     Dosage: 35 ML, ONCE/SINGLE

REACTIONS (13)
  - ACCIDENTAL OVERDOSE [None]
  - BLOOD BILIRUBIN INCREASED [None]
  - BLOOD CREATININE INCREASED [None]
  - BLOOD PRESSURE INCREASED [None]
  - CONVULSION [None]
  - GRAND MAL CONVULSION [None]
  - HEPATIC FUNCTION ABNORMAL [None]
  - HYPOMAGNESAEMIA [None]
  - INCORRECT DOSE ADMINISTERED [None]
  - LEUKOENCEPHALOPATHY [None]
  - METABOLIC ACIDOSIS [None]
  - RENAL IMPAIRMENT [None]
  - THERAPEUTIC AGENT TOXICITY [None]
